FAERS Safety Report 10022313 (Version 4)
Quarter: 2015Q2

REPORT INFORMATION
  Report Type: Spontaneous
  Country: US (occurrence: US)
  Receive Date: 20140319
  Receipt Date: 20150605
  Transmission Date: 20150821
  Serious: Yes (Hospitalization, Disabling, Other)
  Sender: FDA-Public Use
  Company Number: US-SANOFI-AVENTIS-2012SA041897

PATIENT
  Age: 56 Year
  Sex: Male

DRUGS (12)
  1. METOPROLOL [Concomitant]
     Active Substance: METOPROLOL
     Indication: PANIC DISORDER
  2. DILTIAZEM [Concomitant]
     Active Substance: DILTIAZEM
  3. NITROGLYCERINE [Concomitant]
     Active Substance: NITROGLYCERIN
  4. PRAVASTATIN [Concomitant]
     Active Substance: PRAVASTATIN\PRAVASTATIN SODIUM
  5. PLAVIX [Suspect]
     Active Substance: CLOPIDOGREL BISULFATE
     Indication: ACUTE CORONARY SYNDROME
     Route: 048
     Dates: start: 20090807, end: 20111225
  6. SIMVASTATIN. [Concomitant]
     Active Substance: SIMVASTATIN
     Indication: PANIC DISORDER
  7. ASPIRIN. [Concomitant]
     Active Substance: ASPIRIN
  8. PLAVIX [Suspect]
     Active Substance: CLOPIDOGREL BISULFATE
     Indication: MYOCARDIAL INFARCTION
     Route: 048
     Dates: start: 20090807, end: 20111225
  9. DIAZEPAM. [Concomitant]
     Active Substance: DIAZEPAM
     Indication: PANIC DISORDER
  10. SERTRALINE [Concomitant]
     Active Substance: SERTRALINE HYDROCHLORIDE
  11. LISINOPRIL. [Concomitant]
     Active Substance: LISINOPRIL
     Indication: PANIC DISORDER
  12. TRAZODONE [Concomitant]
     Active Substance: TRAZODONE HYDROCHLORIDE

REACTIONS (11)
  - Multiple injuries [Not Recovered/Not Resolved]
  - Psychological trauma [Not Recovered/Not Resolved]
  - Anhedonia [Not Recovered/Not Resolved]
  - Social problem [Not Recovered/Not Resolved]
  - Economic problem [Not Recovered/Not Resolved]
  - Tension [Not Recovered/Not Resolved]
  - Pain [Not Recovered/Not Resolved]
  - Physical disability [Not Recovered/Not Resolved]
  - Deformity [Not Recovered/Not Resolved]
  - Gastrointestinal haemorrhage [Unknown]
  - Loss of employment [Not Recovered/Not Resolved]

NARRATIVE: CASE EVENT DATE: 20111225
